FAERS Safety Report 5799350-6 (Version None)
Quarter: 2008Q3

REPORT INFORMATION
  Report Type: 
  Country: None (occurrence: None)
  Receive Date: 20080702
  Receipt Date: 20080620
  Transmission Date: 20090109
  Serious: Yes (Other)
  Sender: FDA-Public Use
  Company Number: US-PFIZER INC-2008053422

PATIENT
  Age: 9 Year
  Sex: Male
  Weight: 27.272 kg

DRUGS (1)
  1. VIAGRA [Suspect]
     Indication: SEXUAL ABUSE

REACTIONS (4)
  - DIZZINESS [None]
  - INTENTIONAL DRUG MISUSE [None]
  - LOSS OF CONSCIOUSNESS [None]
  - SEXUAL ABUSE [None]
